FAERS Safety Report 19846310 (Version 1)
Quarter: 2021Q3

REPORT INFORMATION
  Report Type: Spontaneous
  Country: US (occurrence: US)
  Receive Date: 20210917
  Receipt Date: 20210917
  Transmission Date: 20211014
  Serious: Yes (Other)
  Sender: FDA-Public Use
  Company Number: US-UCBSA-2021043056

PATIENT
  Age: 33 Year
  Sex: Female

DRUGS (1)
  1. CIMZIA [Suspect]
     Active Substance: CERTOLIZUMAB PEGOL
     Indication: ANKYLOSING SPONDYLITIS
     Dosage: 400 MILLIGRAM, EV 4 WEEKS
     Route: 058
     Dates: start: 20210716

REACTIONS (7)
  - Sinusitis [Unknown]
  - Pain [Unknown]
  - Urticaria [Unknown]
  - Fatigue [Unknown]
  - Abdominal discomfort [Unknown]
  - Throat irritation [Unknown]
  - Oral pruritus [Unknown]

NARRATIVE: CASE EVENT DATE: 20210828
